FAERS Safety Report 25787470 (Version 1)
Quarter: 2025Q3

REPORT INFORMATION
  Report Type: Spontaneous
  Country: EU (occurrence: EU)
  Receive Date: 20250910
  Receipt Date: 20250910
  Transmission Date: 20251020
  Serious: Yes (Other)
  Sender: CHEPLAPHARM
  Company Number: EU-CHEPLA-2025010616

PATIENT
  Age: 3 Decade
  Sex: Male

DRUGS (5)
  1. OLANZAPINE [Suspect]
     Active Substance: OLANZAPINE
     Indication: Delusion
     Dosage: DAILY DOSE: 2.5 MILLIGRAM
     Route: 048
  2. OLANZAPINE [Suspect]
     Active Substance: OLANZAPINE
     Indication: Prophylaxis
     Dosage: DAILY DOSE: 2.5 MILLIGRAM
     Route: 048
  3. OLANZAPINE [Suspect]
     Active Substance: OLANZAPINE
     Indication: Delusion
     Route: 048
  4. OLANZAPINE [Suspect]
     Active Substance: OLANZAPINE
     Indication: Prophylaxis
     Route: 048
  5. OXCARBAZEPINE [Suspect]
     Active Substance: OXCARBAZEPINE
     Indication: Epilepsy
     Route: 048

REACTIONS (7)
  - Acute lymphocytic leukaemia [Recovered/Resolved]
  - Neutropenia [Unknown]
  - Leukopenia [Unknown]
  - Thrombocytopenia [Unknown]
  - Anaemia [Unknown]
  - Vitamin B12 decreased [Not Recovered/Not Resolved]
  - Off label use [Recovered/Resolved]
